FAERS Safety Report 14415767 (Version 2)
Quarter: 2018Q2

REPORT INFORMATION
  Report Type: Spontaneous
  Country: FR (occurrence: FR)
  Receive Date: 20180122
  Receipt Date: 20180509
  Transmission Date: 20180711
  Serious: Yes (Other)
  Sender: FDA-Public Use
  Company Number: FR-MERCK KGAA-2040455

PATIENT
  Age: 44 Year
  Sex: Female
  Weight: 44 kg

DRUGS (1)
  1. NOVOTHYROX [Suspect]
     Active Substance: LEVOTHYROXINE SODIUM
     Indication: HYPOTHYROIDISM
     Route: 048
     Dates: start: 20170408, end: 20171014

REACTIONS (27)
  - Dyspepsia [Not Recovered/Not Resolved]
  - Psychiatric symptom [None]
  - Insomnia [Not Recovered/Not Resolved]
  - Blood thyroid stimulating hormone [Not Recovered/Not Resolved]
  - Myalgia [None]
  - Pruritus [None]
  - Asthenia [Not Recovered/Not Resolved]
  - Eyelid oedema [None]
  - Fatigue [None]
  - Depression [None]
  - Anxiety [None]
  - Irritability [Not Recovered/Not Resolved]
  - Muscle tightness [None]
  - Loss of personal independence in daily activities [None]
  - Muscle spasms [Not Recovered/Not Resolved]
  - Visual acuity reduced [Not Recovered/Not Resolved]
  - Visual impairment [None]
  - Arthralgia [Not Recovered/Not Resolved]
  - Abdominal distension [Not Recovered/Not Resolved]
  - Irritable bowel syndrome [None]
  - Stress [None]
  - Personal relationship issue [None]
  - Headache [Not Recovered/Not Resolved]
  - Vertigo [Not Recovered/Not Resolved]
  - Vision blurred [Not Recovered/Not Resolved]
  - Dizziness [None]
  - Nervousness [None]

NARRATIVE: CASE EVENT DATE: 2017
